FAERS Safety Report 17613855 (Version 5)
Quarter: 2020Q3

REPORT INFORMATION
  Report Type: Report from Study
  Country: US (occurrence: US)
  Receive Date: 20200402
  Receipt Date: 20200827
  Transmission Date: 20201102
  Serious: Yes (Hospitalization)
  Sender: FDA-Public Use
  Company Number: NVSC2020US085995

PATIENT
  Age: 4 Year
  Sex: Male

DRUGS (2)
  1. ILARIS [Suspect]
     Active Substance: CANAKINUMAB
     Indication: JUVENILE IDIOPATHIC ARTHRITIS
     Dosage: 64 MG, QMO
     Route: 058
     Dates: start: 20191005
  2. ILARIS [Suspect]
     Active Substance: CANAKINUMAB
     Dosage: 72 MG, Q 8 WEEKS
     Route: 058
     Dates: start: 20191008

REACTIONS (2)
  - Incorrect dose administered [Unknown]
  - COVID-19 [Unknown]

NARRATIVE: CASE EVENT DATE: 20200321
